FAERS Safety Report 20336369 (Version 1)
Quarter: 2022Q1

REPORT INFORMATION
  Report Type: Spontaneous
  Country: SE (occurrence: SE)
  Receive Date: 20220114
  Receipt Date: 20220114
  Transmission Date: 20220423
  Serious: Yes (Life-Threatening, Hospitalization)
  Sender: FDA-Public Use
  Company Number: SE-ALLERGAN-2202087US

PATIENT
  Sex: Male
  Weight: 73 kg

DRUGS (8)
  1. MEMANTINE [Suspect]
     Active Substance: MEMANTINE
     Indication: Dementia with Lewy bodies
     Dosage: 20 MG, QD
     Route: 048
     Dates: start: 20210111
  2. OMEPRAZOL PENSA [OMEPRAZOLE] [Concomitant]
     Dosage: 10 MG ONE TABLET ONCE DAILY
     Route: 048
  3. ESCITALOPRAM [Concomitant]
     Active Substance: ESCITALOPRAM OXALATE
     Dosage: 10 MG 1 TABLET ONCE DAILY
  4. AMLODIPINE [Concomitant]
     Active Substance: AMLODIPINE BESYLATE
     Dosage: 20 MG 1 TABLET ONCE DAILY
     Route: 048
  5. ENALAPRIL ORION [Concomitant]
     Dosage: 20 MG 1 TABLET ONCE DAILY
     Route: 048
  6. CYANOCOBALAMIN [Concomitant]
     Active Substance: CYANOCOBALAMIN
     Dosage: 1 MG 1 TABLET ONCE DAILY
  7. EXELON [Concomitant]
     Active Substance: RIVASTIGMINE TARTRATE
     Dosage: 4.6 MG / 24 HOURS 1 PATCH ONCE A DAY, CUTANEOUS
  8. FOLIC ACID [Concomitant]
     Active Substance: FOLIC ACID
     Dosage: 1 MG 1 TABLET ONCE DAILY
     Route: 048

REACTIONS (2)
  - Pulmonary embolism [Not Recovered/Not Resolved]
  - Off label use [Unknown]

NARRATIVE: CASE EVENT DATE: 20210730
